FAERS Safety Report 5582166-3 (Version None)
Quarter: 2007Q4

REPORT INFORMATION
  Report Type: 
  Country: None (occurrence: None)
  Receive Date: 20071130
  Receipt Date: 20070605
  Transmission Date: 20080405
  Serious: Yes (Other)
  Sender: FDA-Public Use
  Company Number: WAES 0706USA00831

PATIENT
  Age: 57 Year
  Sex: Female

DRUGS (2)
  1. FOSAMAX [Suspect]
     Dosage: PO
     Route: 049
     Dates: start: 19970101, end: 20050101
  2. FOSAMAX [Suspect]
     Dosage: PO
     Route: 048

REACTIONS (4)
  - ANXIETY [None]
  - DEPRESSION [None]
  - OSTEOMYELITIS [None]
  - OSTEONECROSIS [None]
